FAERS Safety Report 18952119 (Version 1)
Quarter: 2021Q1

REPORT INFORMATION
  Report Type: Spontaneous
  Country: DE (occurrence: DE)
  Receive Date: 20210301
  Receipt Date: 20210301
  Transmission Date: 20210420
  Serious: Yes (Death, Other)
  Sender: FDA-Public Use
  Company Number: DE-SHILPA MEDICARE LIMITED-SML-DE-2021-00213

PATIENT
  Age: 71 Year
  Sex: Male

DRUGS (2)
  1. DOCETAXEL, UNKNOWN [Suspect]
     Active Substance: DOCETAXEL
     Indication: ADENOCARCINOMA
     Route: 065
  2. VARGATEF [Suspect]
     Active Substance: NINTEDANIB
     Indication: ADENOCARCINOMA
     Dosage: DAILY DOSE: 1?0?0
     Dates: start: 20201001

REACTIONS (13)
  - Malignant neoplasm progression [Unknown]
  - Diarrhoea [Unknown]
  - Malignant neoplasm progression [Unknown]
  - Pemphigus [Unknown]
  - Metastases to spleen [Unknown]
  - Metastases to bone [Unknown]
  - Colitis ischaemic [Unknown]
  - Metastases to liver [Unknown]
  - Pyrexia [Unknown]
  - Death [Fatal]
  - Portal vein thrombosis [Unknown]
  - Splenic vein thrombosis [Unknown]
  - Diarrhoea [Unknown]

NARRATIVE: CASE EVENT DATE: 20200918
